FAERS Safety Report 4466174-1 (Version None)
Quarter: 2004Q3

REPORT INFORMATION
  Report Type: 
  Country: None (occurrence: None)
  Receive Date: 20040928
  Receipt Date: 20040928
  Transmission Date: 20050211
  Serious: Yes (Other)
  Sender: FDA-Public Use
  Company Number: None

PATIENT
  Age: 3 Year
  Sex: Female
  Weight: 15.9 kg

DRUGS (1)
  1. ETOPOSIDE [Suspect]
     Indication: NEPHROBLASTOMA
     Dosage: 3.3 MG/KG IV ONCE
     Route: 042
     Dates: start: 20040528

REACTIONS (2)
  - SKIN DISCOLOURATION [None]
  - STRIDOR [None]
